FAERS Safety Report 5092102-4 (Version None)
Quarter: 2006Q3

REPORT INFORMATION
  Report Type: 
  Country: None (occurrence: None)
  Receive Date: 20060829
  Receipt Date: 20060823
  Transmission Date: 20061208
  Serious: Yes (Hospitalization)
  Sender: FDA-Public Use
  Company Number: US-BOEHRINGER INGELHEIM PHARMACEUTICALS, INC.-2006-BP-09799BP

PATIENT
  Sex: Male
  Weight: 83.91 kg

DRUGS (4)
  1. FLOMAX [Suspect]
     Indication: BENIGN PROSTATIC HYPERPLASIA
     Route: 048
     Dates: start: 20050223, end: 20050613
  2. FLOMAX [Suspect]
     Indication: PROSTATE EXAMINATION ABNORMAL
     Route: 048
     Dates: start: 20050621, end: 20050711
  3. FLOMAX [Suspect]
     Indication: POLLAKIURIA
  4. PEPCID [Concomitant]

REACTIONS (5)
  - CONFUSIONAL STATE [None]
  - MIGRAINE [None]
  - PANIC ATTACK [None]
  - TRANSIENT ISCHAEMIC ATTACK [None]
  - VISION BLURRED [None]
